FAERS Safety Report 14934062 (Version 2)
Quarter: 2018Q2

REPORT INFORMATION
  Report Type: Spontaneous
  Country: DE (occurrence: DE)
  Receive Date: 20180524
  Receipt Date: 20180529
  Transmission Date: 20180711
  Serious: Yes (Other)
  Sender: FDA-Public Use
  Company Number: DE-TEVA-2018-DE-895378

PATIENT
  Age: 55 Year
  Sex: Female

DRUGS (2)
  1. RANITIDIN ABZ 300 MG FILMTABLETTEN [Suspect]
     Active Substance: RANITIDINE
     Route: 048
     Dates: start: 1998
  2. OMEPRAZOL 20 MG [Suspect]
     Active Substance: OMEPRAZOLE
     Route: 048
     Dates: start: 1998

REACTIONS (2)
  - Drug dependence [Unknown]
  - Product use issue [Unknown]
